FAERS Safety Report 8413234-6 (Version None)
Quarter: 2012Q2

REPORT INFORMATION
  Report Type: 
  Country: None (occurrence: None)
  Receive Date: 20120605
  Receipt Date: 20120528
  Transmission Date: 20120825
  Serious: Yes (Hospitalization)
  Sender: FDA-Public Use
  Company Number: GB-AMGEN-GBRCT2012033900

PATIENT
  Age: 54 Year
  Sex: Female

DRUGS (7)
  1. ACETAMINOPHEN AND CODEINE PHOSPHATE [Concomitant]
     Dosage: UNK
     Dates: start: 20070207
  2. ETANERCEPT [Suspect]
     Indication: PRODUCT USED FOR UNKNOWN INDICATION
     Dosage: 50 MG, 2 TIMES/WK
     Dates: start: 20081110, end: 20090218
  3. LEVOCETIRIZINE DIHYDROCHLORIDE [Concomitant]
     Dosage: UNK
  4. SIMVASTATIN [Concomitant]
     Dosage: UNK
     Dates: start: 20080915
  5. ACETYLSALICYLIC ACID SRT [Concomitant]
     Dosage: UNK
     Dates: start: 20080220
  6. LEFLUNOMIDE [Concomitant]
     Dosage: UNK
     Dates: start: 20071101
  7. ETODOLAC [Concomitant]
     Dosage: UNK
     Dates: start: 20060322

REACTIONS (1)
  - GALLBLADDER PERFORATION [None]
